FAERS Safety Report 6389594-7 (Version None)
Quarter: 2009Q4

REPORT INFORMATION
  Report Type: 
  Country: None (occurrence: None)
  Receive Date: 20091006
  Receipt Date: 20070821
  Transmission Date: 20100525
  Serious: Yes (Other)
  Sender: FDA-Public Use
  Company Number: US-ASTRAZENECA-2006UW27964

PATIENT
  Age: 669 Month
  Sex: Female
  Weight: 95.3 kg

DRUGS (6)
  1. SEROQUEL [Suspect]
     Route: 048
     Dates: start: 20010813
  2. SEROQUEL [Suspect]
     Dosage: 150-300 MG
     Route: 048
     Dates: start: 20020426
  3. XANAX [Concomitant]
     Dosage: 0.25-0.75 MG
     Route: 048
     Dates: start: 19930719, end: 20060616
  4. HYDROCHLOROTHIAZIDE [Concomitant]
     Route: 048
     Dates: start: 19980331
  5. HYDRALAZINE [Concomitant]
     Route: 048
     Dates: start: 19990708
  6. PREDNISONE TAB [Concomitant]
     Route: 048
     Dates: start: 19990708

REACTIONS (3)
  - DIABETES MELLITUS [None]
  - NEUROPATHY PERIPHERAL [None]
  - TYPE 1 DIABETES MELLITUS [None]
